FAERS Safety Report 7321662-5 (Version None)
Quarter: 2011Q1

REPORT INFORMATION
  Report Type: 
  Country: None (occurrence: None)
  Receive Date: 20110228
  Receipt Date: 20101206
  Transmission Date: 20110831
  Serious: No
  Sender: FDA-Public Use
  Company Number: A0897980A

PATIENT
  Age: 64 Year
  Sex: Female

DRUGS (5)
  1. VALTREX [Suspect]
     Dosage: 1000MG PER DAY
     Route: 048
     Dates: start: 20100901
  2. SYNTHROID [Concomitant]
  3. LIPITOR [Concomitant]
  4. MULTIPLE VITAMIN [Concomitant]
  5. ASPIRIN [Concomitant]

REACTIONS (7)
  - GASTROINTESTINAL TRACT IRRITATION [None]
  - FREQUENT BOWEL MOVEMENTS [None]
  - DIZZINESS [None]
  - NAUSEA [None]
  - HYPERHIDROSIS [None]
  - PRESYNCOPE [None]
  - VOMITING [None]
